FAERS Safety Report 7989724-7 (Version None)
Quarter: 2011Q4

REPORT INFORMATION
  Report Type: 
  Country: None (occurrence: None)
  Receive Date: 20111219
  Receipt Date: 20111205
  Transmission Date: 20120403
  Serious: No
  Sender: FDA-Public Use
  Company Number: US-ELI_LILLY_AND_COMPANY-US201108006551

PATIENT
  Sex: Female

DRUGS (16)
  1. PRILOSEC [Concomitant]
  2. PLAVIX [Concomitant]
  3. VICODIN [Concomitant]
  4. DAYPRO [Concomitant]
  5. LIPITOR [Concomitant]
  6. LIDODERM [Concomitant]
  7. KLONOPIN [Concomitant]
  8. TYLENOL                                 /SCH/ [Concomitant]
  9. CARDIZEM [Concomitant]
  10. FORTEO [Suspect]
     Dosage: 20 UG, QD
     Route: 065
  11. PROVENTIL                               /USA/ [Concomitant]
  12. VOLTAREN [Concomitant]
  13. ZANAFLEX [Concomitant]
  14. RESTASIS [Concomitant]
  15. FORTEO [Suspect]
     Indication: OSTEOPOROSIS
     Dosage: 20 UG, QD
     Route: 065
  16. SYNTHROID [Concomitant]

REACTIONS (7)
  - EXOSTOSIS [None]
  - FEELING ABNORMAL [None]
  - BLOOD PRESSURE DECREASED [None]
  - HYPOTHYROIDISM [None]
  - POST PROCEDURAL COMPLICATION [None]
  - EPISTAXIS [None]
  - ARTHRITIS [None]
